FAERS Safety Report 12399046 (Version 1)
Quarter: 2016Q2

REPORT INFORMATION
  Report Type: Spontaneous
  Country: SE (occurrence: SE)
  Receive Date: 20160524
  Receipt Date: 20160524
  Transmission Date: 20160815
  Serious: Yes (Other)
  Sender: FDA-Public Use
  Company Number: SE-BAYER-2016-095768

PATIENT
  Age: 39 Year
  Sex: Female

DRUGS (1)
  1. JAYDESS [Suspect]
     Active Substance: LEVONORGESTREL
     Dosage: 14 MCG/24HR, CONT
     Route: 015
     Dates: start: 20160421, end: 20160502

REACTIONS (6)
  - Post procedural haemorrhage [None]
  - Post procedural haemorrhage [Not Recovered/Not Resolved]
  - Mental impairment [None]
  - Fatigue [None]
  - Back pain [None]
  - Asthenia [None]

NARRATIVE: CASE EVENT DATE: 201604
